FAERS Safety Report 9982042 (Version 1)
Quarter: 2014Q1

REPORT INFORMATION
  Report Type: Report from Study
  Country: US (occurrence: US)
  Receive Date: 20140307
  Receipt Date: 20140307
  Transmission Date: 20141002
  Serious: No
  Sender: FDA-Public Use
  Company Number: US-ABBVIE-13P-163-1179099-00

PATIENT
  Age: 30 Year
  Sex: Male

DRUGS (4)
  1. HUMIRA [Suspect]
     Indication: CROHN^S DISEASE
     Dates: start: 20131027
  2. IMURAN [Concomitant]
     Indication: CROHN^S DISEASE
  3. IMITREX [Concomitant]
     Indication: HEADACHE
  4. PREDNISONE [Concomitant]
     Indication: CROHN^S DISEASE
     Dosage: TAPERING WILL BE OFF IN 1 WEEK

REACTIONS (2)
  - Injection site pruritus [Recovered/Resolved]
  - Injection site erythema [Not Recovered/Not Resolved]
